FAERS Safety Report 6115613-9 (Version None)
Quarter: 2009Q1

REPORT INFORMATION
  Report Type: 
  Country: None (occurrence: None)
  Receive Date: 20090313
  Receipt Date: 20090224
  Transmission Date: 20090719
  Serious: Yes (Other)
  Sender: FDA-Public Use
  Company Number: PHHY2009JP08651

PATIENT
  Sex: Female

DRUGS (7)
  1. DIOVAN [Suspect]
     Dosage: 80 MG, QD
     Route: 048
     Dates: start: 20071002, end: 20081017
  2. TARLONG [Concomitant]
     Indication: HYPERTENSION
     Dosage: 10 MG
     Route: 048
     Dates: start: 20070227
  3. ALMARL [Concomitant]
     Indication: HYPERTENSION
     Dosage: 20 MG
     Route: 048
     Dates: start: 20050117
  4. ADALAT [Concomitant]
     Indication: HYPERTENSION
     Dosage: 40 MG
     Route: 048
     Dates: start: 20071023
  5. BAYMYCARD [Concomitant]
     Indication: HYPERTENSION
     Dosage: 10 MG
     Route: 048
     Dates: start: 20050117, end: 20071022
  6. NITROL [Concomitant]
     Dosage: 40 MG
     Route: 048
     Dates: start: 20050117, end: 20081017
  7. ASPIRIN [Concomitant]
     Dosage: 100 MG
     Route: 048
     Dates: start: 20050117, end: 20081017

REACTIONS (1)
  - HEPATIC NEOPLASM MALIGNANT [None]
